FAERS Safety Report 5732840-0 (Version None)
Quarter: 2008Q2

REPORT INFORMATION
  Report Type: 
  Country: None (occurrence: None)
  Receive Date: 20080509
  Receipt Date: 20080508
  Transmission Date: 20081010
  Serious: Yes (Death)
  Sender: FDA-Public Use
  Company Number: US-RANBAXY-2008US-14971

PATIENT

DRUGS (3)
  1. ISOTRETINOIN [Suspect]
     Indication: DRUG USE FOR UNKNOWN INDICATION
     Dosage: 40 MG, UNK
     Route: 048
  2. ISOTRETINOIN [Suspect]
     Dosage: 20 MG, UNK
     Route: 048
  3. ISOTRETINOIN [Suspect]
     Dosage: 10 MG, UNK
     Route: 048

REACTIONS (1)
  - DEATH [None]
